FAERS Safety Report 12217799 (Version 1)
Quarter: 2016Q1

REPORT INFORMATION
  Report Type: Spontaneous
  Country: US (occurrence: US)
  Receive Date: 20160329
  Receipt Date: 20160329
  Transmission Date: 20160526
  Serious: No
  Sender: FDA-Public Use
  Company Number: US-B.I. PHARMACEUTICALS,INC./RIDGEFIELD-2016-BI-14478BP

PATIENT
  Age: 64 Year
  Sex: Female
  Weight: 96 kg

DRUGS (3)
  1. GLYXAMBI [Suspect]
     Active Substance: EMPAGLIFLOZIN\LINAGLIPTIN
     Indication: DIABETES MELLITUS
     Dosage: DOSE PER APPLICATION AND DAILY DOSE: 25 MG/ 5 MG;
     Route: 048
     Dates: start: 201512, end: 20160210
  2. RISPERDOL [Concomitant]
     Indication: BIPOLAR DISORDER
     Dosage: 10 MG
     Route: 048
  3. IRBERSARTAN [Concomitant]
     Indication: DIABETES MELLITUS
     Dosage: 300 MG
     Route: 048

REACTIONS (1)
  - Blood glucose decreased [Not Recovered/Not Resolved]

NARRATIVE: CASE EVENT DATE: 201602
